FAERS Safety Report 26011826 (Version 2)
Quarter: 2025Q4

REPORT INFORMATION
  Report Type: Spontaneous
  Country: US (occurrence: US)
  Receive Date: 20251107
  Receipt Date: 20251113
  Transmission Date: 20260117
  Serious: Yes (Other)
  Sender: MERCK SHARP & DOHME LLC
  Company Number: US-009507513-2347752

PATIENT
  Sex: Female

DRUGS (2)
  1. TEMOZOLOMIDE [Suspect]
     Active Substance: TEMOZOLOMIDE
     Indication: Glioblastoma multiforme
     Route: 048
  2. PAXALISIB [Suspect]
     Active Substance: PAXALISIB
     Indication: Glioblastoma multiforme

REACTIONS (2)
  - Glioblastoma multiforme [Unknown]
  - Recurrent cancer [Unknown]
